FAERS Safety Report 7500372-5 (Version None)
Quarter: 2011Q2

REPORT INFORMATION
  Report Type: 
  Country: None (occurrence: None)
  Receive Date: 20110524
  Receipt Date: 20110505
  Transmission Date: 20111010
  Serious: Yes (Hospitalization, Other)
  Sender: FDA-Public Use
  Company Number: US-BAYER-2011-015996

PATIENT
  Age: 23 Year
  Sex: Female
  Weight: 58.9 kg

DRUGS (5)
  1. SIMETHICONE [Concomitant]
     Dosage: 125 MG, UNK
     Route: 048
  2. YASMIN [Suspect]
     Indication: ACNE
  3. DROSPIRENONE AND ETHINYL ESTRADIOL [Suspect]
     Indication: ACNE
  4. YAZ [Suspect]
     Indication: CONTRACEPTION
  5. YAZ [Suspect]
     Indication: ACNE
     Dosage: UNK
     Route: 048
     Dates: start: 20070101, end: 20090101

REACTIONS (4)
  - INJURY [None]
  - CHOLECYSTITIS ACUTE [None]
  - PAIN [None]
  - CHOLELITHIASIS [None]
